FAERS Safety Report 19922699 (Version 1)
Quarter: 2021Q4

REPORT INFORMATION
  Report Type: Spontaneous
  Country: US (occurrence: US)
  Receive Date: 20211005
  Receipt Date: 20211005
  Transmission Date: 20220304
  Serious: Yes (Death)
  Sender: FDA-Public Use
  Company Number: None

PATIENT
  Age: 73 Year
  Sex: Female
  Weight: 46.3 kg

DRUGS (13)
  1. REGEN-COV [Suspect]
     Active Substance: CASIRIVIMAB\IMDEVIMAB
     Indication: COVID-19
     Dosage: ?          OTHER FREQUENCY:ONCE;
     Route: 042
  2. ATORVASTATIN [Concomitant]
     Active Substance: ATORVASTATIN
     Dates: start: 20211004
  3. cholecalciferol 1000U dialy [Concomitant]
     Dates: start: 20211004
  4. Fluconazole 200mg daily [Concomitant]
     Dates: start: 20211004
  5. metronidaozle 500mg IV every 8 hours [Concomitant]
     Dates: start: 20211004
  6. pantoprazole 40mg daily [Concomitant]
  7. morphine 5mg IV x 1 dose [Concomitant]
     Dates: start: 20211004
  8. Vanocmycin PO 250mg every 6 hours [Concomitant]
     Dates: start: 20211004
  9. hydromorphone 0.3mg iv x 1 [Concomitant]
     Dates: start: 20211005
  10. hydromorphone 0.5mg iv x 1 [Concomitant]
     Dates: start: 20211005
  11. iohexol 350mg IV x 1 [Concomitant]
     Dates: start: 20211004
  12. ondansetron 4mg IV x 1 [Concomitant]
     Dates: start: 20211004
  13. cyanocobalmin 2000mcg daily [Concomitant]
     Dates: start: 20211004

REACTIONS (12)
  - Abdominal pain [None]
  - Diarrhoea [None]
  - Crohn^s disease [None]
  - Oesophageal candidiasis [None]
  - Colitis [None]
  - Clostridium test positive [None]
  - Clostridium test positive [None]
  - Ventricular fibrillation [None]
  - Agonal rhythm [None]
  - Tachycardia [None]
  - Shock [None]
  - Cardiac arrest [None]

NARRATIVE: CASE EVENT DATE: 20211005
